FAERS Safety Report 14816720 (Version 1)
Quarter: 2018Q2

REPORT INFORMATION
  Report Type: Spontaneous
  Country: FR (occurrence: FR)
  Receive Date: 20180426
  Receipt Date: 20180426
  Transmission Date: 20180711
  Serious: Yes (Other)
  Sender: FDA-Public Use
  Company Number: FR-MYLANLABS-2018M1027625

PATIENT
  Age: 46 Year
  Sex: Male

DRUGS (3)
  1. HYDROCHLOROTHIAZIDE/VALSARTAN [Suspect]
     Active Substance: HYDROCHLOROTHIAZIDE\VALSARTAN
     Indication: HYPERTENSION
     Route: 048
     Dates: start: 20170718, end: 20171014
  2. FENOFIBRATE. [Concomitant]
     Active Substance: FENOFIBRATE
     Indication: HYPERCHOLESTEROLAEMIA
     Route: 048
  3. JANUMET [Concomitant]
     Active Substance: METFORMIN HYDROCHLORIDE\SITAGLIPTIN PHOSPHATE
     Indication: DIABETES MELLITUS
     Route: 048

REACTIONS (3)
  - Uveitis [Recovering/Resolving]
  - Vision blurred [Unknown]
  - Intraocular pressure decreased [Recovering/Resolving]

NARRATIVE: CASE EVENT DATE: 20171011
